FAERS Safety Report 7206522-2 (Version None)
Quarter: 2011Q1

REPORT INFORMATION
  Report Type: 
  Country: None (occurrence: None)
  Receive Date: 20110103
  Receipt Date: 20101228
  Transmission Date: 20110831
  Serious: Yes (Other)
  Sender: FDA-Public Use
  Company Number: US-JNJFOC-20100900852

PATIENT
  Sex: Male
  Weight: 74.39 kg

DRUGS (3)
  1. PERCOCET [Concomitant]
     Indication: PAIN
     Dosage: 2-4 TIMES PER DAY AS NEEDED
     Route: 048
  2. DURAGESIC-50 [Suspect]
     Indication: PAIN
     Route: 062
  3. DURAGESIC-50 [Suspect]
     Route: 062

REACTIONS (4)
  - DRUG INEFFECTIVE [None]
  - WEIGHT DECREASED [None]
  - EATING DISORDER [None]
  - HERPES ZOSTER [None]
